FAERS Safety Report 19039373 (Version 1)
Quarter: 2021Q1

REPORT INFORMATION
  Report Type: Report from Study
  Country: AU (occurrence: AU)
  Receive Date: 20210322
  Receipt Date: 20210322
  Transmission Date: 20210420
  Serious: Yes (Other)
  Sender: FDA-Public Use
  Company Number: AU-TAKEDA-2021TUS017414

PATIENT
  Age: 52 Year
  Sex: Male
  Weight: 76.9 kg

DRUGS (44)
  1. BORTEZOMIB. [Suspect]
     Active Substance: BORTEZOMIB
     Indication: PLASMA CELL MYELOMA
     Dosage: 1.3 MILLIGRAM/SQ. METER
     Route: 058
     Dates: start: 20201208, end: 20210201
  2. DARATUMUMAB [Suspect]
     Active Substance: DARATUMUMAB
     Indication: PLASMA CELL MYELOMA
     Dosage: 16 MILLIGRAM/KILOGRAM
     Route: 041
     Dates: start: 20201208, end: 20210302
  3. ALLOPURINOL. [Concomitant]
     Active Substance: ALLOPURINOL
     Indication: PROPHYLAXIS
     Dosage: 300 MILLIGRAM, QD
     Route: 048
     Dates: start: 20201209, end: 20210121
  4. PARACETAMOL [Concomitant]
     Active Substance: ACETAMINOPHEN
     Indication: PREMEDICATION
     Dosage: 1 GRAM
     Route: 048
     Dates: start: 20201208
  5. MAGNESIUM SULFATE HEPTAHYDRATE [Concomitant]
     Active Substance: MAGNESIUM SULFATE HEPTAHYDRATE
     Dosage: 10 MILLIMOLE, QD
     Route: 042
     Dates: start: 20210213, end: 20210213
  6. MAGNESIUM SULFATE HEPTAHYDRATE [Concomitant]
     Active Substance: MAGNESIUM SULFATE HEPTAHYDRATE
     Dosage: 20 MILLIMOLE, QD
     Route: 042
     Dates: start: 20210226, end: 20210226
  7. DEXAMETHASONE. [Suspect]
     Active Substance: DEXAMETHASONE
     Indication: PLASMA CELL MYELOMA
     Dosage: 20 MILLIGRAM
     Route: 042
     Dates: start: 20201208, end: 20201208
  8. PANTOPRAZOLE [Concomitant]
     Active Substance: PANTOPRAZOLE
     Indication: GASTROOESOPHAGEAL REFLUX PROPHYLAXIS
     Dosage: 40 MILLIGRAM, QD
     Route: 048
     Dates: start: 20181120
  9. MONTELUKAST SODIUM. [Concomitant]
     Active Substance: MONTELUKAST SODIUM
     Indication: PREMEDICATION
     Dosage: 10 MILLIGRAM
     Route: 048
     Dates: start: 20201208
  10. MAGNESIUM ASPARTATE [Concomitant]
     Active Substance: MAGNESIUM ASPARTATE
     Indication: PROPHYLAXIS
     Dosage: UNK
     Route: 048
     Dates: start: 20210209, end: 20210209
  11. POTASSIUM CHLORIDE. [Concomitant]
     Active Substance: POTASSIUM CHLORIDE
     Dosage: UNK UNK, TID
     Route: 048
     Dates: start: 20210214, end: 20210216
  12. POTASSIUM CHLORIDE. [Concomitant]
     Active Substance: POTASSIUM CHLORIDE
     Dosage: UNK UNK, TID
     Route: 048
     Dates: start: 20210211, end: 20210212
  13. TEMAZEPAM. [Concomitant]
     Active Substance: TEMAZEPAM
     Indication: INSOMNIA
     Dosage: 10 MILLIGRAM
     Route: 048
     Dates: start: 20201228
  14. INSULIN GLARGINE [Concomitant]
     Active Substance: INSULIN GLARGINE
     Dosage: 36 INTERNATIONAL UNIT, QD
     Route: 058
     Dates: start: 20210107
  15. INSULIN GLARGINE [Concomitant]
     Active Substance: INSULIN GLARGINE
     Dosage: 50 INTERNATIONAL UNIT, QD
     Route: 058
     Dates: start: 20210107
  16. MAGNESIUM SULFATE HEPTAHYDRATE [Concomitant]
     Active Substance: MAGNESIUM SULFATE HEPTAHYDRATE
     Dosage: 10 MILLIMOLE, QD
     Route: 042
     Dates: start: 20210212, end: 20210213
  17. SPIRONOLACTONE. [Concomitant]
     Active Substance: SPIRONOLACTONE
     Indication: OEDEMA PERIPHERAL
     Dosage: 25 MILLIGRAM, QD
     Route: 048
     Dates: start: 20210216, end: 20210216
  18. INSULIN GLARGINE [Concomitant]
     Active Substance: INSULIN GLARGINE
     Dosage: 20 INTERNATIONAL UNIT, QD
     Route: 058
     Dates: start: 20210112
  19. POTASSIUM CHLORIDE. [Concomitant]
     Active Substance: POTASSIUM CHLORIDE
     Indication: HYPOKALAEMIA
     Dosage: UNK UNK, TID
     Route: 048
     Dates: start: 20210204, end: 20210206
  20. VORICONAZOLE. [Concomitant]
     Active Substance: VORICONAZOLE
     Dosage: 300 MILLIGRAM, BID
     Route: 048
     Dates: start: 20210130
  21. MAGNESIUM SULFATE HEPTAHYDRATE [Concomitant]
     Active Substance: MAGNESIUM SULFATE HEPTAHYDRATE
     Dosage: 10 MILLIMOLE, QD
     Route: 042
     Dates: start: 20210216, end: 20210216
  22. CALCIUM CARBONATE. [Concomitant]
     Active Substance: CALCIUM CARBONATE
     Indication: MINERAL SUPPLEMENTATION
     Dosage: 1.5 GRAM, TID
     Route: 048
     Dates: start: 20210110
  23. ZOMETA [Concomitant]
     Active Substance: ZOLEDRONIC ACID
     Indication: PROPHYLAXIS
     Dosage: 4 MILLIGRAM, Q4WEEKS
     Route: 042
     Dates: start: 20210111
  24. BACTRIM [Concomitant]
     Active Substance: SULFAMETHOXAZOLE\TRIMETHOPRIM
     Indication: ANTIBIOTIC PROPHYLAXIS
     Dosage: UNK, BID
     Route: 048
     Dates: start: 20201231
  25. VORICONAZOLE. [Concomitant]
     Active Substance: VORICONAZOLE
     Indication: ASPERGILLUS INFECTION
     Dosage: 300 MILLIGRAM, BID
     Route: 048
     Dates: start: 20210107, end: 20210219
  26. MAGNESIUM SULFATE HEPTAHYDRATE [Concomitant]
     Active Substance: MAGNESIUM SULFATE HEPTAHYDRATE
     Indication: HYPOMAGNESAEMIA
     Dosage: 10 MILLIMOLE, QD
     Route: 042
     Dates: start: 20210208, end: 20210209
  27. MAGNESIUM SULFATE HEPTAHYDRATE [Concomitant]
     Active Substance: MAGNESIUM SULFATE HEPTAHYDRATE
     Dosage: 20 MILLIMOLE, QD
     Route: 042
     Dates: start: 20210303, end: 20210303
  28. CETIRIZINE [Concomitant]
     Active Substance: CETIRIZINE HYDROCHLORIDE
     Indication: PREMEDICATION
     Dosage: 10 MILLIGRAM
     Route: 048
     Dates: start: 20201208
  29. FILGRASTIM [Concomitant]
     Active Substance: FILGRASTIM
     Indication: NEUTROPHIL COUNT DECREASED
     Dosage: 300 MICROGRAM, 1/WEEK
     Route: 058
     Dates: start: 20210130, end: 20210209
  30. NOVORAPID [Concomitant]
     Active Substance: INSULIN ASPART
     Indication: HYPERGLYCAEMIA
     Dosage: UNK, QD
     Route: 058
     Dates: start: 20210101
  31. INSULIN GLARGINE [Concomitant]
     Active Substance: INSULIN GLARGINE
     Indication: HYPERGLYCAEMIA
     Dosage: UNK, QD
     Route: 058
     Dates: start: 20210105
  32. POTASSIUM CHLORIDE. [Concomitant]
     Active Substance: POTASSIUM CHLORIDE
     Dosage: UNK UNK, QD
     Route: 048
     Dates: start: 20210209, end: 20210209
  33. MAGNESIUM SULFATE HEPTAHYDRATE [Concomitant]
     Active Substance: MAGNESIUM SULFATE HEPTAHYDRATE
     Dosage: 20 MILLIMOLE, QD
     Route: 042
     Dates: start: 20210219, end: 20210219
  34. CLOTRIMAZOLE. [Concomitant]
     Active Substance: CLOTRIMAZOLE
     Indication: BALANOPOSTHITIS
     Dosage: 1 APPLICATION
     Route: 061
     Dates: start: 20210107
  35. GLUCAGON. [Concomitant]
     Active Substance: GLUCAGON
     Indication: HYPERGLYCAEMIA
     Dosage: 1 MILLIGRAM
     Route: 030
     Dates: start: 20210130
  36. VENETOCLAX. [Suspect]
     Active Substance: VENETOCLAX
     Indication: PLASMA CELL MYELOMA
     Dosage: UNK
     Route: 048
  37. DEXAMETHASONE. [Suspect]
     Active Substance: DEXAMETHASONE
     Indication: PLASMA CELL MYELOMA
     Dosage: 20 MILLIGRAM
     Route: 048
     Dates: start: 20201231, end: 20210302
  38. MAGNESIUM ASPARTATE [Concomitant]
     Active Substance: MAGNESIUM ASPARTATE
     Indication: HYPOMAGNESAEMIA
     Dosage: 500 MILLIGRAM, BID
     Route: 048
     Dates: start: 20210110
  39. PANADOL [Concomitant]
     Active Substance: ACETAMINOPHEN
     Indication: PAIN
     Dosage: UNK
     Route: 048
     Dates: start: 20201224
  40. POTASSIUM CHLORIDE. [Concomitant]
     Active Substance: POTASSIUM CHLORIDE
     Dosage: 14 MILLIMOLE
     Route: 048
     Dates: start: 20210219, end: 20210227
  41. SPIRONOLACTONE. [Concomitant]
     Active Substance: SPIRONOLACTONE
     Dosage: 25 MILLIGRAM, QD
     Route: 048
     Dates: start: 20210214, end: 20210214
  42. CALCIUM CARBONATE. [Concomitant]
     Active Substance: CALCIUM CARBONATE
     Indication: HYPOCALCAEMIA
     Dosage: 1.5 GRAM, TID
     Route: 048
     Dates: start: 20210108
  43. COLECALCIFEROL [Concomitant]
     Active Substance: CHOLECALCIFEROL
     Indication: HYPOCALCAEMIA
     Dosage: 25 MICROGRAM, QD
     Route: 048
     Dates: start: 20210130
  44. SPIRONOLACTONE. [Concomitant]
     Active Substance: SPIRONOLACTONE
     Dosage: 25 MILLIGRAM, BID
     Route: 048
     Dates: start: 20210216

REACTIONS (2)
  - Cytomegalovirus infection [Recovered/Resolved]
  - Cryptococcosis [Not Recovered/Not Resolved]

NARRATIVE: CASE EVENT DATE: 20210206
